FAERS Safety Report 5068258-6 (Version None)
Quarter: 2006Q3

REPORT INFORMATION
  Report Type: 
  Country: None (occurrence: None)
  Receive Date: 20060802
  Receipt Date: 20050621
  Transmission Date: 20061208
  Serious: Yes (Hospitalization)
  Sender: FDA-Public Use
  Company Number: US-BRISTOL-MYERS SQUIBB COMPANY-13019310

PATIENT
  Age: 78 Year
  Sex: Female
  Weight: 50 kg

DRUGS (9)
  1. COUMADIN [Suspect]
     Indication: THROMBOSIS PROPHYLAXIS
     Dosage: ON VARYING DOSES FOR YEARS
  2. LEVOXYL [Concomitant]
     Dosage: .05-0.1MG; 1 TABLET ONCE DAY FOR ^YEARS^
  3. TOPROL-XL [Concomitant]
     Dosage: 1 TABLET ONCE DAY FOR ^YEARS^
  4. ZOCOR [Concomitant]
     Dosage: 1 TABLET ONCE DAY FOR ^YEARS^
  5. FOLIC ACID [Concomitant]
     Dosage: 1 TABLET ONCE DAY FOR ^YEARS^
  6. XANAX [Concomitant]
  7. REMERON [Concomitant]
     Dosage: 1 TABLET ONCE DAY FOR ^YEARS^
  8. NEXIUM [Concomitant]
     Dosage: 1 TABLET ONCE DAY FOR ^YEARS^
  9. PLETAL [Concomitant]
     Dosage: 1 TABLET ONCE DAY FOR ^YEARS^

REACTIONS (1)
  - HAEMORRHAGE [None]
